FAERS Safety Report 5029768-0 (Version None)
Quarter: 2006Q2

REPORT INFORMATION
  Report Type: 
  Country: None (occurrence: None)
  Receive Date: 20060504
  Receipt Date: 20060113
  Transmission Date: 20061013
  Serious: No
  Sender: FDA-Public Use
  Company Number: 200610307BWH

PATIENT
  Age: 42 Year
  Sex: Male

DRUGS (3)
  1. LEVITRA [Suspect]
     Indication: ERECTILE DYSFUNCTION
     Dosage: 10 MG, TOTAL DAILY, ORAL
     Route: 048
     Dates: start: 20060101
  2. VICODIN [Concomitant]
  3. BLOOD PRESSURE MEDICATIONS [Concomitant]

REACTIONS (1)
  - DRUG EFFECT PROLONGED [None]
